FAERS Safety Report 23191917 (Version 2)
Quarter: 2023Q4

REPORT INFORMATION
  Report Type: Report from Study
  Country: CO (occurrence: CO)
  Receive Date: 20231116
  Receipt Date: 20231206
  Transmission Date: 20240110
  Serious: Yes (Hospitalization)
  Sender: FDA-Public Use
  Company Number: CO-JNJFOC-20231129806

PATIENT
  Age: 29 Year
  Sex: Female
  Weight: 41 kg

DRUGS (1)
  1. SIMPONI [Suspect]
     Active Substance: GOLIMUMAB
     Indication: Spondyloarthropathy
     Dosage: LAST DRUG APPLICATION: 27-SEP-2023
     Route: 058
     Dates: start: 20170227

REACTIONS (1)
  - Lymph node abscess [Recovering/Resolving]

NARRATIVE: CASE EVENT DATE: 20231001
